FAERS Safety Report 13461338 (Version 1)
Quarter: 2017Q2

REPORT INFORMATION
  Report Type: Spontaneous
  Country: US (occurrence: US)
  Receive Date: 20170420
  Receipt Date: 20170420
  Transmission Date: 20170830
  Serious: Yes (Other)
  Sender: FDA-Public Use
  Company Number: US-TEVA-760795USA

PATIENT
  Sex: Female

DRUGS (1)
  1. APRI [Suspect]
     Active Substance: DESOGESTREL\ETHINYL ESTRADIOL
     Dosage: 0.15 MG/0.03MG
     Route: 065

REACTIONS (3)
  - Chest pain [Unknown]
  - Swelling face [Unknown]
  - Local swelling [Unknown]

NARRATIVE: CASE EVENT DATE: 2017
